FAERS Safety Report 15563350 (Version 1)
Quarter: 2018Q4

REPORT INFORMATION
  Report Type: Report from Study
  Country: US (occurrence: US)
  Receive Date: 20181029
  Receipt Date: 20181029
  Transmission Date: 20190205
  Serious: Yes (Hospitalization)
  Sender: FDA-Public Use
  Company Number: PHEH2018US045508

PATIENT
  Age: 77 Year
  Sex: Female

DRUGS (1)
  1. ENTRESTO [Suspect]
     Active Substance: SACUBITRIL\VALSARTAN
     Indication: PRODUCT USED FOR UNKNOWN INDICATION
     Dosage: 1 DF (26 MG/24 MG), QD
     Route: 048
     Dates: start: 20181021

REACTIONS (5)
  - Fatigue [Unknown]
  - Underdose [Unknown]
  - Inappropriate schedule of product administration [Unknown]
  - Arthritis [Unknown]
  - Arthralgia [Unknown]

NARRATIVE: CASE EVENT DATE: 20181021
